FAERS Safety Report 5619814-5 (Version None)
Quarter: 2008Q1

REPORT INFORMATION
  Report Type: 
  Country: None (occurrence: None)
  Receive Date: 20080208
  Receipt Date: 20080131
  Transmission Date: 20080703
  Serious: Yes (Hospitalization, Disabling)
  Sender: FDA-Public Use
  Company Number: PHBS2007JP16157

PATIENT
  Age: 60 Year
  Sex: Male
  Weight: 57 kg

DRUGS (5)
  1. NEORAL [Suspect]
     Indication: APLASTIC ANAEMIA
     Dosage: 150 MG/DAY
     Route: 048
     Dates: start: 20010101
  2. NEORAL [Suspect]
     Dosage: 100 MG/D
     Route: 048
  3. PREDONINE [Concomitant]
     Indication: APLASTIC ANAEMIA
     Dosage: 50 MG/DAY
     Route: 048
     Dates: start: 20010101
  4. PREDONINE [Concomitant]
     Dosage: 60 MG/DAY
     Route: 048
  5. PREDONINE [Concomitant]
     Dosage: 30 MG/D
     Route: 048

REACTIONS (19)
  - BIOPSY KIDNEY ABNORMAL [None]
  - BLOOD ALBUMIN DECREASED [None]
  - BLOOD CHOLESTEROL INCREASED [None]
  - BLOOD CREATININE INCREASED [None]
  - BLOOD LACTATE DEHYDROGENASE INCREASED [None]
  - BLOOD UREA INCREASED [None]
  - BLOOD URINE PRESENT [None]
  - FACE OEDEMA [None]
  - FOCAL GLOMERULOSCLEROSIS [None]
  - HAEMOGLOBIN DECREASED [None]
  - IMMUNOGLOBULINS DECREASED [None]
  - LOW DENSITY LIPOPROTEIN APHERESIS [None]
  - OEDEMA PERIPHERAL [None]
  - PHARYNGOLARYNGEAL DISCOMFORT [None]
  - PLATELET COUNT DECREASED [None]
  - PROTEIN TOTAL DECREASED [None]
  - PROTEINURIA [None]
  - RED BLOOD CELLS URINE POSITIVE [None]
  - URINE PROTEIN/CREATININE RATIO ABNORMAL [None]
